FAERS Safety Report 15836430 (Version 10)
Quarter: 2019Q3

REPORT INFORMATION
  Report Type: Spontaneous
  Country: KR (occurrence: KR)
  Receive Date: 20190117
  Receipt Date: 20190719
  Transmission Date: 20191004
  Serious: Yes (Hospitalization)
  Sender: FDA-Public Use
  Company Number: KR-009507513-1901KOR004446

PATIENT
  Sex: Male

DRUGS (37)
  1. WATER FOR INJECTION BP [Concomitant]
     Dosage: QUANTITY: 1 (100 MILLILITER); DAYS: 1
     Dates: start: 20181228
  2. SODIUM BICARBONATE. [Concomitant]
     Active Substance: SODIUM BICARBONATE
     Dosage: QUANTITY: 8; DAYS: 1
     Dates: start: 20181228
  3. SODIUM CHLORIDE. [Concomitant]
     Active Substance: SODIUM CHLORIDE
     Dosage: QUANTITY: 13 (260 ML); DAYS: 1
     Dates: start: 20181228
  4. SODIUM CHLORIDE. [Concomitant]
     Active Substance: SODIUM CHLORIDE
     Dosage: QUANTITY: 2 (1000 ML), DAYS: 1
     Dates: start: 20181228
  5. TAZOPERAN [Concomitant]
     Dosage: QUANTITY: 29; DAYS: 1
     Dates: start: 20181228
  6. IOBRIX [Concomitant]
     Dosage: QUANTITY: 2; DAYS: 1
     Dates: start: 20181228
  7. HYDRALAZINE HYDROCHLORIDE. [Concomitant]
     Active Substance: HYDRALAZINE HYDROCHLORIDE
     Dosage: QUANTITY: 2; DAYS: 1
     Dates: start: 20181228
  8. SODIUM CHLORIDE. [Concomitant]
     Active Substance: SODIUM CHLORIDE
     Dosage: QUANTITY: 1 (20ML); DAYS: 1
     Dates: start: 20190213
  9. SODIUM CHLORIDE. [Concomitant]
     Active Substance: SODIUM CHLORIDE
     Dosage: QUANTITY: 2 (50 MILLILITER/BAG); DAYS: 1
     Dates: start: 20190305
  10. PENIRAMIN [Concomitant]
     Dosage: QUANTITY: 1; DAYS: 1; INJECTION
     Dates: start: 20190213
  11. PENIRAMIN [Concomitant]
     Dosage: QUANTITY: 1; DAYS: 1; INJECTION
     Dates: start: 20190305
  12. KEYTRUDA [Suspect]
     Active Substance: PEMBROLIZUMAB
     Dosage: QUANTITY: 2; DAYS: 1
     Dates: start: 20190326, end: 20190326
  13. KEYTRUDA [Suspect]
     Active Substance: PEMBROLIZUMAB
     Dosage: QUANTITY: 2; DAYS: 1
     Dates: start: 20190509, end: 20190509
  14. DENOGAN [Concomitant]
     Active Substance: PROPACETAMOL HYDROCHLORIDE
     Dosage: QUANTITY: 4; DAYS: 1
     Dates: start: 20181228
  15. SODIUM CHLORIDE. [Concomitant]
     Active Substance: SODIUM CHLORIDE
     Dosage: QUANTITY: 1 (50ML); DAYS: 1
     Dates: start: 20190123, end: 20190123
  16. SODIUM CHLORIDE. [Concomitant]
     Active Substance: SODIUM CHLORIDE
     Dosage: QUANTITY: 3 (300ML); DAYS: 1
     Dates: start: 20190213
  17. SODIUM CHLORIDE. [Concomitant]
     Active Substance: SODIUM CHLORIDE
     Dosage: QUANTITY: 2 (50ML/BAG); DAYS: 1
     Dates: start: 20180213
  18. KEYTRUDA [Suspect]
     Active Substance: PEMBROLIZUMAB
     Dosage: QUANTITY: 2; DAYS: 1
     Dates: start: 20190528
  19. SODIUM CHLORIDE. [Concomitant]
     Active Substance: SODIUM CHLORIDE
     Dosage: QUANTITY: 3 (300ML); DAYS: 1
     Dates: start: 20190305
  20. SODIUM CHLORIDE. [Concomitant]
     Active Substance: SODIUM CHLORIDE
     Dosage: QUANTITY: 1 (50ML/BAG); DAYS: 1
     Dates: start: 20190326
  21. KEYTRUDA [Suspect]
     Active Substance: PEMBROLIZUMAB
     Dosage: QUANTITY: 2; DAYS: 1
     Dates: start: 20190305, end: 20190305
  22. SODIUM CHLORIDE. [Concomitant]
     Active Substance: SODIUM CHLORIDE
     Dosage: QUANTITY: 36 (3600 ML); DAYS: 1
     Dates: start: 20181228
  23. SODIUM CHLORIDE. [Concomitant]
     Active Substance: SODIUM CHLORIDE
     Dosage: QUANTITY: 1 (20ML); DAYS: 1
     Dates: start: 20190305
  24. SODIUM CHLORIDE. [Concomitant]
     Active Substance: SODIUM CHLORIDE
     Dosage: QUANTITY: 3 (300ML); DAYS: 1
     Dates: start: 20190326
  25. PROFA [Concomitant]
     Dosage: QUANTITY: 1; DAYS: 1
     Dates: start: 20181228
  26. KEYTRUDA [Suspect]
     Active Substance: PEMBROLIZUMAB
     Dosage: 100 MILLIGRAM; TIMES: 1
     Dates: start: 20190416, end: 20190416
  27. SODIUM CHLORIDE. [Concomitant]
     Active Substance: SODIUM CHLORIDE
     Dosage: 100 ML; TIMES: 1
     Dates: start: 20190416
  28. PENIRAMIN [Concomitant]
     Dosage: QUANTITY: 1; DAYS: 1; INJECTION
     Dates: start: 20190123, end: 20190123
  29. SPATAM [Concomitant]
     Dosage: QUANTITY: 8; DAYS: 1
     Dates: start: 20181228
  30. KEYTRUDA [Suspect]
     Active Substance: PEMBROLIZUMAB
     Dosage: QUANTITY 2, DAYS 1
     Dates: start: 20190701, end: 20190701
  31. PENIRAMIN [Concomitant]
     Dosage: QUANTITY: 3; DAYS: 1
     Dates: start: 20181228
  32. KEYTRUDA [Suspect]
     Active Substance: PEMBROLIZUMAB
     Indication: GALLBLADDER CANCER
     Dosage: QUANTITY: 2; DAYS: 1
     Dates: start: 20190104, end: 20190104
  33. KEYTRUDA [Suspect]
     Active Substance: PEMBROLIZUMAB
     Dosage: QUANTITY: 1; DAYS: 1
     Dates: start: 20190123, end: 20190123
  34. KEYTRUDA [Suspect]
     Active Substance: PEMBROLIZUMAB
     Dosage: QUANTITY: 2; DAYS: 1
     Dates: start: 20190213, end: 20190213
  35. LASIX [Concomitant]
     Active Substance: FUROSEMIDE
     Dosage: QUANTITY: 11; DAYS: 1
     Dates: start: 20181228
  36. NESP [Concomitant]
     Active Substance: DARBEPOETIN ALFA
     Dosage: QUANTITY: 2; DAYS: 1
     Dates: start: 20181228
  37. SODIUM CHLORIDE. [Concomitant]
     Active Substance: SODIUM CHLORIDE
     Dosage: QUANTITY: 1 (100ML); DAYS: 1
     Dates: start: 20190123, end: 20190123

REACTIONS (7)
  - Adverse event [Unknown]
  - Packed red blood cell transfusion [Unknown]
  - Product use in unapproved indication [Unknown]
  - Inappropriate schedule of product administration [Unknown]
  - Adverse event [Unknown]
  - Adverse event [Unknown]
  - Transfusion [Unknown]

NARRATIVE: CASE EVENT DATE: 2019
